FAERS Safety Report 13506371 (Version 1)
Quarter: 2017Q2

REPORT INFORMATION
  Report Type: Spontaneous
  Country: US (occurrence: US)
  Receive Date: 20170502
  Receipt Date: 20170502
  Transmission Date: 20170830
  Serious: No
  Sender: FDA-Public Use
  Company Number: US-ROCHE-1210935

PATIENT
  Sex: Female

DRUGS (7)
  1. AVASTIN [Suspect]
     Active Substance: BEVACIZUMAB
     Route: 031
     Dates: start: 20130402
  2. AVASTIN [Suspect]
     Active Substance: BEVACIZUMAB
     Indication: EYE HAEMORRHAGE
     Route: 031
     Dates: start: 20120918, end: 20130402
  3. COZAAR [Concomitant]
     Active Substance: LOSARTAN POTASSIUM
     Route: 065
  4. INSULIN [Concomitant]
     Active Substance: INSULIN NOS
     Indication: DIABETES MELLITUS
     Route: 065
  5. DOXYCYCLINE. [Concomitant]
     Active Substance: DOXYCYCLINE
     Route: 048
  6. AVASTIN [Suspect]
     Active Substance: BEVACIZUMAB
     Route: 031
     Dates: start: 201210
  7. SYNTHROID [Concomitant]
     Active Substance: LEVOTHYROXINE SODIUM
     Route: 065

REACTIONS (7)
  - Lip swelling [Not Recovered/Not Resolved]
  - Nasal disorder [Not Recovered/Not Resolved]
  - Swollen tongue [Not Recovered/Not Resolved]
  - Oropharyngeal pain [Not Recovered/Not Resolved]
  - Sensory disturbance [Not Recovered/Not Resolved]
  - Ageusia [Not Recovered/Not Resolved]
  - Dysphagia [Not Recovered/Not Resolved]
